FAERS Safety Report 21419166 (Version 1)
Quarter: 2022Q4

REPORT INFORMATION
  Report Type: Spontaneous
  Country: GB (occurrence: GB)
  Receive Date: 20221006
  Receipt Date: 20221006
  Transmission Date: 20230113
  Serious: Yes (Other)
  Sender: FDA-Public Use
  Company Number: GB-MHRA-MED-202209280629157850-QCYWG

PATIENT
  Age: 22 Year
  Sex: Male
  Weight: 148 kg

DRUGS (1)
  1. BRINTELLIX [Suspect]
     Active Substance: VORTIOXETINE HYDROBROMIDE
     Indication: Depression
     Dosage: 20 MILLIGRAM, QD
     Route: 065
     Dates: start: 20220908

REACTIONS (2)
  - Amnesia [Unknown]
  - Medication error [Unknown]

NARRATIVE: CASE EVENT DATE: 20220922
